FAERS Safety Report 6306630-4 (Version None)
Quarter: 2009Q3

REPORT INFORMATION
  Report Type: 
  Country: None (occurrence: None)
  Receive Date: 20090812
  Receipt Date: 20090804
  Transmission Date: 20100115
  Serious: Yes (Other)
  Sender: FDA-Public Use
  Company Number: B0574309A

PATIENT
  Sex: Female

DRUGS (3)
  1. LAMICTAL [Suspect]
     Indication: DEPRESSION
     Route: 065
     Dates: start: 20081201, end: 20090501
  2. CONTRACEPTIVE PILL [Concomitant]
  3. EFFEXOR [Concomitant]
     Dosage: 37MG PER DAY
     Route: 065

REACTIONS (4)
  - BLOOD CORTISOL INCREASED [None]
  - DRUG WITHDRAWAL SYNDROME [None]
  - HYPOTHYROIDISM [None]
  - INFECTION [None]
